FAERS Safety Report 9310528 (Version 1)
Quarter: 2013Q2

REPORT INFORMATION
  Report Type: Spontaneous
  Country: US (occurrence: US)
  Receive Date: 20130527
  Receipt Date: 20130527
  Transmission Date: 20140414
  Serious: No
  Sender: FDA-Public Use
  Company Number: US-PFIZER INC-2013159788

PATIENT
  Age: 19 Year
  Sex: Female
  Weight: 49.89 kg

DRUGS (3)
  1. PRISTIQ [Suspect]
     Indication: DEPRESSION
     Dosage: 50 MG DAILY
  2. PRISTIQ [Suspect]
     Indication: ANXIETY
  3. BUSPAR [Concomitant]
     Indication: DEPRESSION
     Dosage: UNK

REACTIONS (3)
  - Feeling abnormal [Recovering/Resolving]
  - Headache [Recovering/Resolving]
  - Paraesthesia [Recovering/Resolving]
